FAERS Safety Report 12346068 (Version 1)
Quarter: 2016Q2

REPORT INFORMATION
  Report Type: Spontaneous
  Country: US (occurrence: None)
  Receive Date: 20160506
  Receipt Date: 20160506
  Transmission Date: 20160815
  Serious: Yes (Hospitalization)
  Sender: FDA-Public Use
  Company Number: None

PATIENT
  Age: 55 Year
  Sex: Male
  Weight: 73.73 kg

DRUGS (2)
  1. ETOPOSIDE (VP-16) [Suspect]
     Active Substance: ETOPOSIDE
     Dates: end: 20160415
  2. CYTARABINE. [Suspect]
     Active Substance: CYTARABINE
     Dates: end: 20160415

REACTIONS (5)
  - Oropharyngeal pain [None]
  - Neutrophil count decreased [None]
  - Cough [None]
  - Tachycardia [None]
  - Sepsis [None]

NARRATIVE: CASE EVENT DATE: 20160429
